FAERS Safety Report 5115379-5 (Version None)
Quarter: 2006Q3

REPORT INFORMATION
  Report Type: 
  Country: None (occurrence: None)
  Receive Date: 20060922
  Receipt Date: 20051104
  Transmission Date: 20061208
  Serious: Yes (Death)
  Sender: FDA-Public Use
  Company Number: 2005BH002837

PATIENT
  Sex: 0

DRUGS (7)
  1. DEXAMETHASONE TAB [Suspect]
     Indication: NON-HODGKIN'S LYMPHOMA
     Dosage: 40 MG; EVERY DAY
  2. IFOSFAMIDE [Suspect]
     Indication: NON-HODGKIN'S LYMPHOMA
     Dosage: 1000 MG/M2; EVERY DAY
  3. UROMITEXAN BAXTER (MESNA) [Suspect]
     Indication: NON-HODGKIN'S LYMPHOMA
     Dosage: 100 MG/M2; EVERY DAY
  4. ETOPOSIDE [Suspect]
     Indication: NON-HODGKIN'S LYMPHOMA
     Dosage: 100 MG/M2
  5. MITOXANTRONE [Suspect]
     Indication: NON-HODGKIN'S LYMPHOMA
     Dosage: 10 MG/M2; EVERY DAY
  6. METHYLGLYOXAL [Suspect]
     Indication: NON-HODGKIN'S LYMPHOMA
     Dosage: 100 MG/M2; EVERY DAY
  7. NEUPOGEN [Suspect]
     Indication: NON-HODGKIN'S LYMPHOMA
     Dosage: 5 UG/KG; EVERY DAY

REACTIONS (1)
  - DRUG TOXICITY [None]
